FAERS Safety Report 16358605 (Version 6)
Quarter: 2022Q4

REPORT INFORMATION
  Report Type: Spontaneous
  Country: JP (occurrence: JP)
  Receive Date: 20190527
  Receipt Date: 20221206
  Transmission Date: 20230112
  Serious: Yes (Hospitalization, Disabling, Other)
  Sender: FDA-Public Use
  Company Number: JP-MSD-M2019-12414

PATIENT
  Age: 85 Year
  Sex: Female
  Weight: 55 kg

DRUGS (1)
  1. KEYTRUDA [Suspect]
     Active Substance: PEMBROLIZUMAB
     Indication: Renal cancer stage III
     Dosage: 200 MILLIGRAM, Q3W
     Route: 041
     Dates: start: 20181226, end: 20190501

REACTIONS (2)
  - Diabetic ketoacidosis [Recovered/Resolved]
  - Fulminant type 1 diabetes mellitus [Recovered/Resolved]

NARRATIVE: CASE EVENT DATE: 20190514
